FAERS Safety Report 22198681 (Version 2)
Quarter: 2023Q2

REPORT INFORMATION
  Report Type: Report from Study
  Country: US (occurrence: US)
  Receive Date: 20230411
  Receipt Date: 20230508
  Transmission Date: 20230722
  Serious: Yes (Other)
  Sender: FDA-Public Use
  Company Number: US-JNJFOC-20210531160

PATIENT
  Age: 74 Year
  Sex: Male
  Weight: 109.3 kg

DRUGS (30)
  1. TECLISTAMAB [Suspect]
     Active Substance: TECLISTAMAB
     Indication: Plasma cell myeloma
     Dosage: STEP-UP DOSE 1 (0.64 ML)
     Route: 058
     Dates: start: 20210510, end: 20210510
  2. NIROGACESTAT [Suspect]
     Active Substance: NIROGACESTAT
     Indication: Plasma cell myeloma
     Route: 048
     Dates: start: 20210510, end: 20210511
  3. AMILORIDE HYDROCHLORIDE [Concomitant]
     Active Substance: AMILORIDE HYDROCHLORIDE
     Indication: Hypertension
     Route: 048
     Dates: start: 20170807, end: 20210509
  4. MIRALAX [Concomitant]
     Active Substance: POLYETHYLENE GLYCOL 3350
     Indication: Constipation
     Route: 048
     Dates: start: 20170825
  5. FUROSEMIDE [Concomitant]
     Active Substance: FUROSEMIDE
     Indication: Oedema peripheral
     Route: 048
     Dates: start: 20171027, end: 20210514
  6. GRANISETRON HYDROCHLORIDE [Concomitant]
     Active Substance: GRANISETRON HYDROCHLORIDE
     Indication: Nausea
     Route: 048
     Dates: start: 20180108
  7. OXYCODONE [Concomitant]
     Active Substance: OXYCODONE
     Indication: Pain
     Route: 048
     Dates: start: 20180108
  8. SERTRALINE HYDROCHLORIDE [Concomitant]
     Active Substance: SERTRALINE HYDROCHLORIDE
     Indication: Major depression
     Route: 048
     Dates: start: 20180108
  9. ASPIRIN [Concomitant]
     Active Substance: ASPIRIN
     Indication: Thrombosis prophylaxis
     Route: 048
     Dates: start: 20180108
  10. VALACYCLOVIR HYDROCHLORIDE [Concomitant]
     Active Substance: VALACYCLOVIR HYDROCHLORIDE
     Indication: Antiviral prophylaxis
     Route: 048
     Dates: start: 20180108
  11. DURAGESIC [Concomitant]
     Active Substance: FENTANYL
     Indication: Pain
     Route: 062
     Dates: start: 20180108
  12. SENNA LEAF [Concomitant]
     Active Substance: SENNA LEAF
     Indication: Constipation
     Route: 048
     Dates: start: 20180806
  13. BISACODYL [Concomitant]
     Active Substance: BISACODYL
     Indication: Constipation
     Route: 048
     Dates: start: 20180806
  14. DOCUSATE SODIUM [Concomitant]
     Active Substance: DOCUSATE SODIUM
     Indication: Constipation
     Route: 048
     Dates: start: 20180806
  15. TYLENOL [Concomitant]
     Active Substance: ACETAMINOPHEN
     Indication: Pain
     Route: 048
     Dates: start: 20180910
  16. PROCHLORPERAZINE [Concomitant]
     Active Substance: PROCHLORPERAZINE
     Indication: Nausea
     Route: 048
     Dates: start: 20190805
  17. ONDANSETRON [Concomitant]
     Active Substance: ONDANSETRON
     Indication: Nausea
     Route: 048
     Dates: start: 20190805
  18. LORAZEPAM [Concomitant]
     Active Substance: LORAZEPAM
     Indication: Anxiety
     Route: 048
     Dates: start: 20200518
  19. ALLOPURINOL [Concomitant]
     Active Substance: ALLOPURINOL
     Indication: Gout
     Route: 048
     Dates: start: 20210108
  20. FAMOTIDINE [Concomitant]
     Active Substance: FAMOTIDINE
     Indication: Abdominal pain upper
     Route: 048
     Dates: start: 20210324
  21. LEVETIRACETAM [Concomitant]
     Active Substance: LEVETIRACETAM
     Indication: Seizure prophylaxis
     Route: 048
     Dates: start: 20210509, end: 20210616
  22. POTASSIUM CHLORIDE [Concomitant]
     Active Substance: POTASSIUM CHLORIDE
     Indication: Hypokalaemia
     Route: 042
     Dates: start: 20210509, end: 20210509
  23. POTASSIUM CHLORIDE [Concomitant]
     Active Substance: POTASSIUM CHLORIDE
     Indication: Prophylaxis
     Route: 042
     Dates: start: 20210510, end: 20210520
  24. BENZONATATE [Concomitant]
     Active Substance: BENZONATATE
     Indication: Cough
     Route: 048
     Dates: start: 20210509, end: 20210520
  25. ENOXAPARIN [Concomitant]
     Active Substance: ENOXAPARIN
     Indication: Thrombosis prophylaxis
     Route: 058
     Dates: start: 20210509, end: 20210520
  26. MAGNESIUM SULFATE [Concomitant]
     Active Substance: MAGNESIUM SULFATE
     Indication: Prophylaxis
     Route: 042
     Dates: start: 20210509, end: 20210520
  27. GUAIFENESIN [Concomitant]
     Active Substance: GUAIFENESIN
     Indication: Cough
     Route: 048
     Dates: start: 20210509, end: 20210520
  28. SODIUM CHLORIDE [Concomitant]
     Active Substance: SODIUM CHLORIDE
     Indication: Fluid replacement
     Route: 042
     Dates: start: 20210509, end: 20210520
  29. VITAMIN D3 [Concomitant]
     Active Substance: CHOLECALCIFEROL
     Indication: Routine health maintenance
     Dosage: 2000
     Route: 048
     Dates: start: 20210510
  30. PENTAMIDINE [Concomitant]
     Active Substance: PENTAMIDINE
     Indication: Infection prophylaxis
     Route: 055
     Dates: start: 20210510

REACTIONS (2)
  - Immune effector cell-associated neurotoxicity syndrome [Recovering/Resolving]
  - Cytokine release syndrome [Recovered/Resolved]

NARRATIVE: CASE EVENT DATE: 20210511
